FAERS Safety Report 11645083 (Version 4)
Quarter: 2024Q1

REPORT INFORMATION
  Report Type: Spontaneous
  Country: US (occurrence: US)
  Receive Date: 20151020
  Receipt Date: 20240319
  Transmission Date: 20240410
  Serious: Yes (Disabling, Congenital Anomaly, Other)
  Sender: FDA-Public Use
  Company Number: FR-ABBVIE-15P-056-1484363-00

PATIENT
  Sex: Female

DRUGS (2)
  1. VALPROATE SODIUM [Suspect]
     Active Substance: VALPROATE SODIUM
     Indication: Maternal exposure timing unspecified
     Route: 064
  2. FOLIC ACID [Concomitant]
     Active Substance: FOLIC ACID
     Indication: Product used for unknown indication

REACTIONS (33)
  - Dysmorphism [Unknown]
  - Cardiac disorder [Unknown]
  - Foetal anticonvulsant syndrome [Unknown]
  - Ear, nose and throat disorder [Unknown]
  - Bronchitis [Unknown]
  - Congenital musculoskeletal disorder of limbs [Unknown]
  - Nasopharyngitis [Unknown]
  - Ear infection [Unknown]
  - Tympanometry [Unknown]
  - Tympanic membrane perforation [Unknown]
  - Deafness [Unknown]
  - Mitral valve incompetence [Unknown]
  - Learning disability [Unknown]
  - Congenital musculoskeletal disorder of limbs [Unknown]
  - Hypotonia [Unknown]
  - Hypertonia [Unknown]
  - Congenital musculoskeletal disorder of spine [Unknown]
  - Nervous system disorder [Unknown]
  - Language disorder [Unknown]
  - Disturbance in attention [Unknown]
  - Balance disorder [Unknown]
  - Psychomotor skills impaired [Unknown]
  - Personality disorder [Unknown]
  - Motor developmental delay [Unknown]
  - Cognitive disorder [Unknown]
  - Agraphia [Unknown]
  - Congenital ureterovesical junction anomaly [Unknown]
  - Strabismus [Unknown]
  - Antisocial personality disorder [Unknown]
  - Pain in extremity [Unknown]
  - Gastrointestinal disorder [Unknown]
  - Reproductive tract disorder [Unknown]
  - Foetal exposure during pregnancy [Unknown]

NARRATIVE: CASE EVENT DATE: 19941220
